FAERS Safety Report 4360811-8 (Version None)
Quarter: 2004Q2

REPORT INFORMATION
  Report Type: 
  Country: None (occurrence: None)
  Receive Date: 20040517
  Receipt Date: 20040430
  Transmission Date: 20050107
  Serious: Yes (Death)
  Sender: FDA-Public Use
  Company Number: MPSI-10214

PATIENT
  Age: 6 Year
  Sex: Male

DRUGS (4)
  1. ALDURAZYME [Suspect]
     Indication: MUCOPOLYSACCHARIDOSIS I
     Dosage: 1500 UNITS QWK IV
     Route: 042
     Dates: start: 20030320, end: 20040422
  2. ALBUTEROL SULFATE [Concomitant]
  3. CEFTAXIMA [Concomitant]
  4. URBASON [Concomitant]

REACTIONS (2)
  - CARDIO-RESPIRATORY ARREST [None]
  - DYSPNOEA [None]
